FAERS Safety Report 9167966 (Version 3)
Quarter: 2013Q2

REPORT INFORMATION
  Report Type: Spontaneous
  Country: ES (occurrence: ES)
  Receive Date: 20130318
  Receipt Date: 20130416
  Transmission Date: 20140414
  Serious: Yes (Death)
  Sender: FDA-Public Use
  Company Number: ES-SANOFI-AVENTIS-2013SA022906

PATIENT
  Age: 75 Year
  Sex: Male
  Weight: 75 kg

DRUGS (9)
  1. JEVTANA [Suspect]
     Indication: PROSTATE CANCER METASTATIC
     Dosage: DOSE: 4.97 MG IN 60 MINUTES (25MG/M2)?INFUSION RATE: 4 ML/ MIN
     Route: 040
     Dates: start: 20130222, end: 20130222
  2. ZOLADEX [Concomitant]
     Indication: OSTEOPENIA
     Dosage: FREQUENCY: QUARTERLY
  3. NATECAL D [Concomitant]
     Indication: OSTEOPENIA
  4. DACORTIN [Concomitant]
     Dosage: 5/12 HOUR
  5. TOLTERODINE L-TARTRATE [Concomitant]
  6. RANITIDINE [Concomitant]
     Dosage: 30 MIN PRIOR TO CABAZITAXEL
     Dates: start: 20130222, end: 20130222
  7. POLARAMINE [Concomitant]
     Dosage: 30 MIN PRIOR TO CABAZITAXEL IN Y-LINE
     Dates: start: 20130222, end: 20130222
  8. ONDASETRON [Concomitant]
     Dosage: 30 MIN PRIOR TO CABAZITAXEL
     Dates: start: 20130222, end: 20130222
  9. DEXAMETHASONE [Concomitant]
     Dosage: 30 MIN PRIOR TO CABAZITAXEL
     Dates: start: 20130222, end: 20130222

REACTIONS (10)
  - Intestinal perforation [Fatal]
  - Abdominal pain [Fatal]
  - Malaise [Fatal]
  - Nausea [Fatal]
  - Vomiting [Fatal]
  - Constipation [Fatal]
  - Intestinal obstruction [Fatal]
  - Hypovolaemic shock [Fatal]
  - Dyspnoea [Fatal]
  - Enteritis [Fatal]
